FAERS Safety Report 10573102 (Version 1)
Quarter: 2014Q4

REPORT INFORMATION
  Report Type: Spontaneous
  Country: US (occurrence: None)
  Receive Date: 20141107
  Receipt Date: 20141107
  Transmission Date: 20150529
  Serious: Yes (Life-Threatening, Hospitalization, Other)
  Sender: FDA-Public Use
  Company Number: None

PATIENT
  Age: 55 Year
  Sex: Female
  Weight: 62.6 kg

DRUGS (1)
  1. RESTASIS [Suspect]
     Active Substance: CYCLOSPORINE
     Indication: DRY EYE
     Route: 047
     Dates: start: 20141029, end: 20141105

REACTIONS (17)
  - Pyrexia [None]
  - Ear pain [None]
  - Speech disorder [None]
  - Hyperhidrosis [None]
  - Sneezing [None]
  - Chills [None]
  - Rash erythematous [None]
  - Seizure [None]
  - Chromaturia [None]
  - Headache [None]
  - Mobility decreased [None]
  - Dizziness [None]
  - Nausea [None]
  - Feeling hot [None]
  - Fatigue [None]
  - Urine flow decreased [None]
  - Pain [None]

NARRATIVE: CASE EVENT DATE: 20141105
